FAERS Safety Report 6699025-5 (Version None)
Quarter: 2010Q2

REPORT INFORMATION
  Report Type: 
  Country: None (occurrence: None)
  Receive Date: 20100426
  Receipt Date: 20100426
  Transmission Date: 20101027
  Serious: Yes (Hospitalization)
  Sender: FDA-Public Use
  Company Number: None

PATIENT
  Age: 52 Year
  Sex: Female

DRUGS (1)
  1. CLORAPREP WITH TINT 26 ML APPLICATOR [Suspect]
     Dates: end: 20100415

REACTIONS (1)
  - DEVICE BREAKAGE [None]
